FAERS Safety Report 12408866 (Version 1)
Quarter: 2016Q2

REPORT INFORMATION
  Report Type: Spontaneous
  Country: US (occurrence: US)
  Receive Date: 20160526
  Receipt Date: 20160526
  Transmission Date: 20160815
  Serious: No
  Sender: FDA-Public Use
  Company Number: US-BAYER-2016-101515

PATIENT
  Age: 84 Year
  Sex: Female
  Weight: 61.22 kg

DRUGS (8)
  1. ASPIRIN. [Concomitant]
     Active Substance: ASPIRIN
     Indication: ISCHAEMIC HEART DISEASE PROPHYLAXIS
  2. MAGNESIUM [Concomitant]
     Active Substance: MAGNESIUM
  3. DONEPEZIL. [Concomitant]
     Active Substance: DONEPEZIL
  4. GLUCOSAMINE [Concomitant]
     Active Substance: GLUCOSAMINE
  5. MIRALAX [Suspect]
     Active Substance: POLYETHYLENE GLYCOL 3350
     Indication: CONSTIPATION
     Dosage: 1 DF, BID
     Route: 048
     Dates: start: 20160524
  6. ARIMIDEX [Concomitant]
     Active Substance: ANASTROZOLE
  7. HYDROCHLOROTHIAZIDE. [Concomitant]
     Active Substance: HYDROCHLOROTHIAZIDE
  8. CALCIUM [Concomitant]
     Active Substance: CALCIUM

REACTIONS (1)
  - Product use issue [None]

NARRATIVE: CASE EVENT DATE: 20160524
